FAERS Safety Report 10861285 (Version 1)
Quarter: 2015Q1

REPORT INFORMATION
  Report Type: Spontaneous
  Country: US (occurrence: US)
  Receive Date: 20150224
  Receipt Date: 20150224
  Transmission Date: 20150721
  Serious: No
  Sender: FDA-Public Use
  Company Number: US-009507513-1502USA009092

PATIENT
  Age: 17 Year
  Sex: Female
  Weight: 90.7 kg

DRUGS (1)
  1. NEXPLANON [Suspect]
     Active Substance: ETONOGESTREL
     Indication: CONTRACEPTION
     Dosage: EVERY 3 YEARS, 1 ROD (1DF), LEFT ARM
     Dates: start: 20120518

REACTIONS (3)
  - Menorrhagia [Unknown]
  - Menstruation irregular [Unknown]
  - Muscle spasms [Unknown]

NARRATIVE: CASE EVENT DATE: 20120518
